FAERS Safety Report 16348499 (Version 1)
Quarter: 2019Q2

REPORT INFORMATION
  Report Type: Spontaneous
  Country: US (occurrence: US)
  Receive Date: 20190523
  Receipt Date: 20190523
  Transmission Date: 20190711
  Serious: Yes (Other)
  Sender: FDA-Public Use
  Company Number: US-EMCURE PHARMS-2019HTG00093

PATIENT

DRUGS (1)
  1. INDOMETHACIN. [Suspect]
     Active Substance: INDOMETHACIN

REACTIONS (3)
  - Dyspepsia [Unknown]
  - Lower gastrointestinal haemorrhage [Unknown]
  - Drug hypersensitivity [Unknown]
